FAERS Safety Report 4315585-3 (Version None)
Quarter: 2004Q1

REPORT INFORMATION
  Report Type: 
  Country: None (occurrence: None)
  Receive Date: 20040311
  Receipt Date: 20040311
  Transmission Date: 20041129
  Serious: Yes (Life-Threatening, Hospitalization)
  Sender: FDA-Public Use
  Company Number: None

PATIENT
  Age: 59 Year
  Sex: Female
  Weight: 80 kg

DRUGS (1)
  1. FRAGMIN [Suspect]
     Dosage: 5,000 UNITS/DAY
     Dates: start: 20031219

REACTIONS (2)
  - HAEMORRHAGE INTRACRANIAL [None]
  - HEMIPARESIS [None]
